FAERS Safety Report 7948463-9 (Version None)
Quarter: 2011Q4

REPORT INFORMATION
  Report Type: 
  Country: None (occurrence: None)
  Receive Date: 20111125
  Receipt Date: 20111110
  Transmission Date: 20120403
  Serious: Yes (Life-Threatening)
  Sender: FDA-Public Use
  Company Number: AU-DEXPHARM-20111677

PATIENT
  Age: 84 Year
  Sex: Female

DRUGS (1)
  1. CHLORHEXIDINE (WASH- CHLORHEXIDINE 0.5% IN ALCOHOL 70% SOLUTION, PFIZE [Suspect]

REACTIONS (14)
  - APPLICATION SITE ERYTHEMA [None]
  - ANAPHYLACTIC SHOCK [None]
  - SEPTIC SHOCK [None]
  - PULSELESS ELECTRICAL ACTIVITY [None]
  - CARDIAC ARREST [None]
  - HYPOTENSION [None]
  - APPLICATION SITE RASH [None]
  - PNEUMONIA [None]
  - APPLICATION SITE VESICLES [None]
  - MENINGITIS PNEUMOCOCCAL [None]
  - ACUTE RESPIRATORY FAILURE [None]
  - URINE OUTPUT DECREASED [None]
  - LOSS OF CONSCIOUSNESS [None]
  - DEEP VEIN THROMBOSIS [None]
